FAERS Safety Report 13924572 (Version 1)
Quarter: 2017Q3

REPORT INFORMATION
  Report Type: Spontaneous
  Country: DE (occurrence: DE)
  Receive Date: 20170831
  Receipt Date: 20170831
  Transmission Date: 20171127
  Serious: Yes (Other)
  Sender: FDA-Public Use
  Company Number: DE-JNJFOC-20170821708

PATIENT
  Sex: Female

DRUGS (3)
  1. METOPROLOL. [Concomitant]
     Active Substance: METOPROLOL
     Indication: HYPERTENSION
     Route: 065
  2. REGAINE FRAUEN [Suspect]
     Active Substance: MINOXIDIL
     Route: 065
  3. REGAINE FRAUEN [Suspect]
     Active Substance: MINOXIDIL
     Indication: ANDROGENETIC ALOPECIA
     Route: 065

REACTIONS (2)
  - Breast cancer [Recovered/Resolved]
  - Contraindicated product administered [Unknown]
